FAERS Safety Report 24666040 (Version 3)
Quarter: 2025Q3

REPORT INFORMATION
  Report Type: Spontaneous
  Country: JP (occurrence: JP)
  Receive Date: 20241126
  Receipt Date: 20250912
  Transmission Date: 20251020
  Serious: Yes (Hospitalization, Other)
  Sender: AMGEN
  Company Number: JP-AMGEN-JPNSP2024230841

PATIENT
  Sex: Female

DRUGS (10)
  1. EVENITY [Suspect]
     Active Substance: ROMOSOZUMAB-AQQG
     Indication: Osteoporosis
     Route: 065
     Dates: end: 20220829
  2. EVENITY [Suspect]
     Active Substance: ROMOSOZUMAB-AQQG
     Route: 058
     Dates: start: 20220926
  3. LOXOPROFEN SODIUM [Concomitant]
     Active Substance: LOXOPROFEN SODIUM
  4. REBAMIPIDE [Concomitant]
     Active Substance: REBAMIPIDE
  5. ELDECALCITOL [Concomitant]
     Active Substance: ELDECALCITOL
  6. Loxonin pap [Concomitant]
  7. LYRICA [Concomitant]
     Active Substance: PREGABALIN
  8. LEVOTHYROXINE [Concomitant]
     Active Substance: LEVOTHYROXINE
  9. CALBLOCK [Concomitant]
     Active Substance: AZELNIDIPINE
  10. Pursennid [Concomitant]

REACTIONS (2)
  - Deep vein thrombosis [Unknown]
  - Surgery [Unknown]
